FAERS Safety Report 16063962 (Version 2)
Quarter: 2019Q1

REPORT INFORMATION
  Report Type: Spontaneous
  Country: HU (occurrence: HU)
  Receive Date: 20190312
  Receipt Date: 20190315
  Transmission Date: 20190418
  Serious: Yes (Death, Other)
  Sender: FDA-Public Use
  Company Number: HU-ASTRAZENECA-2019SE31377

PATIENT
  Age: 18187 Day
  Sex: Female

DRUGS (1)
  1. LYNPARZA [Suspect]
     Active Substance: OLAPARIB
     Indication: OVARIAN CANCER
     Dosage: 800.0MG UNKNOWN
     Route: 048
     Dates: start: 20181107

REACTIONS (4)
  - Anaemia [Not Recovered/Not Resolved]
  - Pneumonia [Fatal]
  - Respiratory failure [Fatal]
  - Thrombocytopenia [Not Recovered/Not Resolved]

NARRATIVE: CASE EVENT DATE: 20180111
